FAERS Safety Report 7797387-9 (Version None)
Quarter: 2011Q4

REPORT INFORMATION
  Report Type: 
  Country: None (occurrence: None)
  Receive Date: 20111005
  Receipt Date: 20110930
  Transmission Date: 20120403
  Serious: Yes (Other)
  Sender: FDA-Public Use
  Company Number: US-PFIZER INC-2011234272

PATIENT
  Sex: Female
  Weight: 97.959 kg

DRUGS (2)
  1. LYRICA [Suspect]
     Indication: DIABETES MELLITUS
     Dosage: 50 MG, 3X/DAY
     Route: 048
     Dates: start: 20110901, end: 20110930
  2. LYRICA [Suspect]
     Indication: HERPES ZOSTER

REACTIONS (4)
  - OEDEMA PERIPHERAL [None]
  - DIZZINESS [None]
  - SOMNOLENCE [None]
  - WEIGHT INCREASED [None]
